FAERS Safety Report 14695894 (Version 1)
Quarter: 2018Q1

REPORT INFORMATION
  Report Type: Spontaneous
  Country: US (occurrence: US)
  Receive Date: 20180329
  Receipt Date: 20180329
  Transmission Date: 20180509
  Serious: No
  Sender: FDA-Public Use
  Company Number: None

PATIENT
  Age: 15 Year
  Sex: Male
  Weight: 65.77 kg

DRUGS (1)
  1. ACCUTANE [Suspect]
     Active Substance: ISOTRETINOIN
     Indication: ACNE
     Dosage: DOSE - 6 CYC
     Route: 048

REACTIONS (6)
  - Dry skin [None]
  - Stress [None]
  - Depression [None]
  - Alopecia [None]
  - Suicidal ideation [None]
  - Hair texture abnormal [None]

NARRATIVE: CASE EVENT DATE: 20170301
